FAERS Safety Report 7276132-X (Version None)
Quarter: 2011Q1

REPORT INFORMATION
  Report Type: 
  Country: None (occurrence: None)
  Receive Date: 20110204
  Receipt Date: 20110125
  Transmission Date: 20110831
  Serious: Yes (Disabling)
  Sender: FDA-Public Use
  Company Number: PHHY2011CH05855

PATIENT
  Sex: Female

DRUGS (7)
  1. LISINOPRIL [Concomitant]
     Indication: HYPERTENSION
     Dosage: UNK
  2. PRAVASTATIN [Concomitant]
     Indication: HYPERLIPIDAEMIA
     Dosage: 40 MG, QD
  3. LYRICA [Concomitant]
     Indication: PAIN
     Dosage: 150 MG, QD
  4. CYMBALTA [Concomitant]
     Dosage: 60 MG, QD
  5. ZOMETA [Suspect]
     Indication: MULTIPLE MYELOMA
     Dosage: 0.4 MG, UNK
     Route: 042
     Dates: start: 20081201, end: 20101117
  6. DISTRANEURIN [Concomitant]
     Dosage: 300 MG, QD
  7. TRIAMCORT [Suspect]
     Dosage: UNK
     Dates: end: 20101117

REACTIONS (2)
  - OSTEONECROSIS OF JAW [None]
  - BONE DISORDER [None]
